FAERS Safety Report 6615777-4 (Version None)
Quarter: 2010Q1

REPORT INFORMATION
  Report Type: 
  Country: None (occurrence: None)
  Receive Date: 20100305
  Receipt Date: 20100224
  Transmission Date: 20100710
  Serious: Yes (Hospitalization, Other)
  Sender: FDA-Public Use
  Company Number: US-AMGEN-QUU371609

PATIENT
  Sex: Female

DRUGS (2)
  1. ENBREL [Suspect]
     Indication: RHEUMATOID ARTHRITIS
     Route: 058
     Dates: start: 20020901
  2. PLAQUENIL [Concomitant]
     Route: 048

REACTIONS (13)
  - ALOPECIA [None]
  - APPENDICECTOMY [None]
  - CONSTIPATION [None]
  - FATIGUE [None]
  - FIBROCYSTIC BREAST DISEASE [None]
  - HAEMORRHAGE [None]
  - LOSS OF CONSCIOUSNESS [None]
  - MENOMETRORRHAGIA [None]
  - MIGRAINE [None]
  - NAUSEA [None]
  - OVARIAN CYST [None]
  - PELVIC PAIN [None]
  - PROCEDURAL COMPLICATION [None]
